FAERS Safety Report 6016641-4 (Version None)
Quarter: 2008Q4

REPORT INFORMATION
  Report Type: 
  Country: None (occurrence: None)
  Receive Date: 20081218
  Receipt Date: 20081205
  Transmission Date: 20090506
  Serious: No
  Sender: FDA-Public Use
  Company Number: 2008001165

PATIENT
  Age: 75 Year
  Sex: Female
  Weight: 56 kg

DRUGS (3)
  1. ERLOTINIB (ERLOTINIB) (TABLET) (ERLOTINIB) [Suspect]
     Indication: LUNG ADENOCARCINOMA
     Dosage: (150 MG, QD) ,ORAL
     Route: 048
     Dates: start: 20080306
  2. NORVASC [Concomitant]
  3. NU-LOTAN [Concomitant]

REACTIONS (5)
  - DIARRHOEA [None]
  - KERATITIS [None]
  - PARONYCHIA [None]
  - RASH [None]
  - STOMATITIS [None]
